FAERS Safety Report 25583563 (Version 2)
Quarter: 2025Q3

REPORT INFORMATION
  Report Type: Spontaneous
  Country: US (occurrence: US)
  Receive Date: 20250721
  Receipt Date: 20250826
  Transmission Date: 20251020
  Serious: No
  Sender: NOVO NORDISK
  Company Number: US-NOVOPROD-1479081

PATIENT
  Age: 47 Year
  Sex: Female

DRUGS (4)
  1. RYBELSUS [Suspect]
     Active Substance: SEMAGLUTIDE
     Indication: Weight control
     Dates: start: 2024, end: 202506
  2. RYBELSUS [Suspect]
     Active Substance: SEMAGLUTIDE
     Indication: Inflammation
  3. RYBELSUS [Suspect]
     Active Substance: SEMAGLUTIDE
     Indication: Polycystic ovarian syndrome
  4. PROGESTERONE [Concomitant]
     Active Substance: PROGESTERONE
     Indication: Product used for unknown indication

REACTIONS (1)
  - Product use in unapproved indication [Unknown]
